FAERS Safety Report 8773661 (Version 1)
Quarter: 2012Q4

REPORT INFORMATION
  Report Type: 
  Country: IL (occurrence: IL)
  Receive Date: 20120907
  Receipt Date: 20120907
  Transmission Date: 20130627
  Serious: Yes (Other)
  Sender: FDA-Public Use
  Company Number: PHHY2012IL077237

PATIENT
  Sex: Female

DRUGS (1)
  1. EXFORGE [Suspect]
     Dosage: 1 DF, (160/10 mg)
     Route: 048

REACTIONS (3)
  - Cerebrovascular accident [Unknown]
  - Paraesthesia [Unknown]
  - Myalgia [Unknown]
